FAERS Safety Report 8899024 (Version 2)
Quarter: 2012Q4

REPORT INFORMATION
  Report Type: 
  Country: US (occurrence: US)
  Receive Date: 20121109
  Receipt Date: 20121226
  Transmission Date: 20130627
  Serious: Yes (Hospitalization)
  Sender: FDA-Public Use
  Company Number: PHHY2012US102540

PATIENT
  Age: 73 Year
  Sex: Female
  Weight: 97.51 kg

DRUGS (5)
  1. GENTEAL MILD TO MODERATE [Suspect]
     Indication: DRY EYE
     Dosage: 1 DF, BID
     Dates: end: 20121021
  2. POLIMIXINA + NEOMICINA + DEXAMETASONA [Concomitant]
     Dates: start: 20120925, end: 20121018
  3. ENALAPRIL [Concomitant]
     Indication: HYPERTENSION
  4. NEXIUM 1-2-3 [Concomitant]
     Dosage: 400 mg, QD
  5. CRESTOR [Concomitant]
     Dosage: 10 mg, QD

REACTIONS (7)
  - Hypersensitivity [Recovered/Resolved]
  - Eye swelling [Recovered/Resolved]
  - Swelling face [Recovered/Resolved]
  - Tremor [Recovered/Resolved]
  - Blood pressure increased [Recovered/Resolved]
  - Renal impairment [Recovered/Resolved]
  - Nausea [Recovered/Resolved]
